FAERS Safety Report 4956684-2 (Version None)
Quarter: 2006Q1

REPORT INFORMATION
  Report Type: 
  Country: None (occurrence: None)
  Receive Date: 20060323
  Receipt Date: 20060316
  Transmission Date: 20060701
  Serious: Yes (Death, Hospitalization)
  Sender: FDA-Public Use
  Company Number: STA-AE-06-022

PATIENT
  Age: 53 Year
  Sex: Male

DRUGS (5)
  1. ACYCLOVIR [Suspect]
     Indication: HERPES ZOSTER
     Dosage: 3 X 10 MG/KG/D IV
     Route: 042
  2. BUSULFAN [Suspect]
     Indication: LEUKAEMIA
     Dosage: 4 MG/KG/D DAYS 1-4
  3. CYCLOPHOSPHAMIDE [Suspect]
     Indication: LEUKAEMIA
     Dosage: 60MG/KG/D, DAYS 5-6
  4. CYCLOSPORINE [Suspect]
     Indication: LEUKAEMIA
  5. METHOTREXATE [Suspect]
     Indication: LEUKAEMIA
     Dosage: 5MG/M2 ON DAY 1 + 3 50%

REACTIONS (20)
  - APNOEA [None]
  - BONE LESION [None]
  - BRAIN HERNIATION [None]
  - BRAIN OEDEMA [None]
  - C-REACTIVE PROTEIN INCREASED [None]
  - CEREBRAL HAEMORRHAGE [None]
  - CSF PROTEIN INCREASED [None]
  - ENCEPHALITIS HERPES [None]
  - EYE PAIN [None]
  - GRAFT VERSUS HOST DISEASE [None]
  - GRAFT VERSUS HOST DISEASE IN SKIN [None]
  - HERPES ZOSTER [None]
  - HERPES ZOSTER DISSEMINATED [None]
  - INTRACRANIAL PRESSURE INCREASED [None]
  - LEUKOENCEPHALOMYELITIS [None]
  - MENINGITIS HERPES [None]
  - MUCOSAL INFLAMMATION [None]
  - PLASMACYTOMA [None]
  - SHOULDER PAIN [None]
  - STEM CELL TRANSPLANT [None]
